FAERS Safety Report 6336215-5 (Version None)
Quarter: 2009Q3

REPORT INFORMATION
  Report Type: 
  Country: None (occurrence: None)
  Receive Date: 20090901
  Receipt Date: 20090818
  Transmission Date: 20100115
  Serious: Yes (Other)
  Sender: FDA-Public Use
  Company Number: PHHY2009NL36540

PATIENT

DRUGS (1)
  1. TOBI [Suspect]

REACTIONS (1)
  - RENAL IMPAIRMENT [None]
